FAERS Safety Report 9856756 (Version 1)
Quarter: 2014Q1

REPORT INFORMATION
  Report Type: Spontaneous
  Country: FR (occurrence: FR)
  Receive Date: 20140130
  Receipt Date: 20140130
  Transmission Date: 20141002
  Serious: Yes (Other)
  Sender: FDA-Public Use
  Company Number: FR-PFIZER INC-2014027357

PATIENT
  Age: 73 Year
  Sex: Male

DRUGS (10)
  1. TRIATEC [Suspect]
     Dosage: UNK
     Route: 048
     Dates: start: 20120101, end: 201210
  2. COVERSYL [Interacting]
     Dosage: UNK
     Route: 048
     Dates: start: 201210, end: 201212
  3. CONTRAMAL [Interacting]
     Dosage: UNK
     Route: 048
     Dates: end: 201212
  4. AMLODIPINE [Concomitant]
     Dosage: UNK
  5. HYPERIUM [Concomitant]
     Dosage: UNK
     Dates: start: 201212, end: 201303
  6. TAHOR [Concomitant]
     Dosage: UNK
  7. EFFIENT [Concomitant]
     Dosage: UNK
  8. INIPOMP [Concomitant]
     Dosage: UNK
  9. LYRICA [Concomitant]
     Dosage: UNK
  10. DEXERYL [Concomitant]
     Dosage: UNK

REACTIONS (5)
  - Drug interaction [Recovered/Resolved]
  - Angioedema [Recovered/Resolved]
  - Tongue oedema [Recovered/Resolved]
  - Urticaria [Recovered/Resolved]
  - Pruritus generalised [Recovered/Resolved]
